FAERS Safety Report 6203126-5 (Version None)
Quarter: 2009Q2

REPORT INFORMATION
  Report Type: 
  Country: None (occurrence: None)
  Receive Date: 20090521
  Receipt Date: 20090512
  Transmission Date: 20091009
  Serious: Yes (Life-Threatening, Hospitalization)
  Sender: FDA-Public Use
  Company Number: GXKR2009DK05156

PATIENT
  Age: 70 Year
  Sex: Male

DRUGS (3)
  1. MORPHINE [Suspect]
     Dosage: 10 DF
  2. NITRAZEPAM [Suspect]
     Dosage: 50 DF
  3. OXAZEPAM [Suspect]
     Dosage: 100 DF

REACTIONS (10)
  - APNOEA [None]
  - BLOOD PRESSURE DIASTOLIC DECREASED [None]
  - LOSS OF CONSCIOUSNESS [None]
  - MIOSIS [None]
  - MULTIPLE DRUG OVERDOSE INTENTIONAL [None]
  - NO THERAPEUTIC RESPONSE [None]
  - PNEUMONIA ASPIRATION [None]
  - RESPIRATORY ACIDOSIS [None]
  - RESPIRATORY FAILURE [None]
  - SUICIDE ATTEMPT [None]
